FAERS Safety Report 10372971 (Version 1)
Quarter: 2014Q3

REPORT INFORMATION
  Report Type: Spontaneous
  Country: US (occurrence: US)
  Receive Date: 20140807
  Receipt Date: 20140807
  Transmission Date: 20150326
  Serious: No
  Sender: FDA-Public Use
  Company Number: US-PFIZER INC-2014216428

PATIENT
  Age: 71 Year
  Sex: Male
  Weight: 95.24 kg

DRUGS (7)
  1. ASPIRIN. [Concomitant]
     Active Substance: ASPIRIN
     Dosage: UNK
  2. VITAMIN D [Suspect]
     Active Substance: CHOLECALCIFEROL
     Dosage: 3000 UNITS, UNK
  3. VITAMIN D [Suspect]
     Active Substance: CHOLECALCIFEROL
     Dosage: 4000 UNITS, UNK
  4. ATORVASTATIN CALCIUM. [Suspect]
     Active Substance: ATORVASTATIN CALCIUM
     Indication: BLOOD CHOLESTEROL INCREASED
     Dosage: 10 MG, 1X/DAY
     Route: 048
     Dates: start: 1999
  5. VITAMIN D [Suspect]
     Active Substance: CHOLECALCIFEROL
     Dosage: 1000 UNITS, UNK
  6. VITAMIN D [Suspect]
     Active Substance: CHOLECALCIFEROL
     Dosage: 2000 UNITS, UNK
  7. VITAMIN D [Suspect]
     Active Substance: CHOLECALCIFEROL
     Dosage: 5000 UNITS, UNK

REACTIONS (3)
  - Hypovitaminosis [Unknown]
  - Cardiac disorder [Unknown]
  - Drug ineffective [Unknown]

NARRATIVE: CASE EVENT DATE: 201309
